FAERS Safety Report 7576940-1 (Version None)
Quarter: 2011Q2

REPORT INFORMATION
  Report Type: 
  Country: None (occurrence: None)
  Receive Date: 20110628
  Receipt Date: 20110625
  Transmission Date: 20111010
  Serious: No
  Sender: FDA-Public Use
  Company Number: US-PFIZER INC-2011141324

PATIENT
  Sex: Male
  Weight: 177 kg

DRUGS (10)
  1. OXYCODONE [Concomitant]
     Indication: ARTHRALGIA
     Dosage: 60 MG, 4X/DAY
     Route: 048
  2. NEXIUM [Concomitant]
     Indication: HIATUS HERNIA
     Dosage: 20 MG, 2X/DAY
     Route: 048
  3. ADVIL LIQUI-GELS [Suspect]
     Indication: ARTHRALGIA
     Dosage: 400 MG, 4X/DAY
     Route: 048
     Dates: start: 20110601, end: 20110625
  4. SEROQUEL [Concomitant]
     Indication: DEPRESSION
     Dosage: 300 MG, DAILY
     Route: 048
  5. ACETYLSALICYLIC ACID [Concomitant]
     Indication: CARDIAC DISORDER
     Dosage: 325 MG, DAILY
     Route: 048
  6. HYZAAR [Concomitant]
     Indication: HYPERTENSION
     Dosage: 100-25 MG TABLETS SPLITTING HALF IN MORNING AND HALF IN EVENING
     Route: 048
  7. TRILEPTAL [Concomitant]
     Indication: BIPOLAR DISORDER
     Dosage: 300 MG, 3X/DAY
     Route: 048
  8. ATENOLOL [Concomitant]
     Indication: HYPERTENSION
     Dosage: 10 MG, DAILY
     Route: 048
  9. CRESTOR [Concomitant]
     Indication: BLOOD CHOLESTEROL INCREASED
     Dosage: UNK
     Route: 048
  10. OXYCONTIN [Concomitant]
     Indication: ARTHRALGIA
     Dosage: 60 MG, 3X/DAY
     Route: 048

REACTIONS (2)
  - OVERDOSE [None]
  - DYSPNOEA [None]
